FAERS Safety Report 8393324-7 (Version None)
Quarter: 2012Q2

REPORT INFORMATION
  Report Type: 
  Country: None (occurrence: None)
  Receive Date: 20120529
  Receipt Date: 20120514
  Transmission Date: 20120825
  Serious: No
  Sender: FDA-Public Use
  Company Number: US-B.I. PHARMACEUTICALS,INC./RIDGEFIELD-2011-BP-02244BP

PATIENT
  Sex: Female

DRUGS (22)
  1. TYLENOL [Concomitant]
     Indication: SCIATICA
  2. SYNTHROID [Concomitant]
     Indication: THYROID DISORDER
  3. M.V.I. [Concomitant]
     Indication: PROPHYLAXIS
     Route: 048
  4. MULTAQ [Concomitant]
     Indication: ATRIAL FIBRILLATION
     Dosage: 800 MG
     Route: 048
     Dates: start: 20101128
  5. BENICAR [Concomitant]
  6. GLUCOSAMINE CHONDROITIN [Concomitant]
     Indication: ROUTINE HEALTH MAINTENANCE
     Route: 048
  7. TYLENOL [Concomitant]
     Indication: BACK PAIN
     Route: 048
  8. TYLENOL [Concomitant]
     Indication: OSTEOARTHRITIS
  9. BENICAR [Concomitant]
     Indication: HYPERTENSION
     Dosage: 5 MG
     Route: 048
  10. UNSPECIFIED ANTIBIOTIC [Suspect]
     Indication: SINUSITIS
     Dates: start: 20120118
  11. UNSPECIFIED ANTIBIOTIC [Suspect]
     Indication: EAR INFECTION
  12. TOPROL-XL [Concomitant]
     Indication: ATRIAL FIBRILLATION
     Dosage: 12.5 MG
  13. CALCIUM [Concomitant]
     Indication: ROUTINE HEALTH MAINTENANCE
     Route: 048
  14. PRADAXA [Suspect]
     Indication: ATRIAL FIBRILLATION
     Dosage: 300 MG
     Route: 048
     Dates: start: 20101128
  15. PRADAXA [Suspect]
     Dosage: 300 MG
     Route: 048
     Dates: start: 20110401
  16. PREDNISONE [Suspect]
     Indication: SCAR
     Dosage: 40MG TAPER DOWN TO 5MG THEN D/C OVER 6 MONTHS
     Dates: start: 20100801, end: 20110201
  17. GLUCOSAMINE [Concomitant]
     Indication: PROPHYLAXIS
     Route: 048
  18. METOPROLOL TARTRATE [Concomitant]
     Indication: ATRIAL FIBRILLATION
     Dosage: 12.5 MG
     Route: 048
  19. GLAUCOMA EYE DROPS [Concomitant]
     Indication: GLAUCOMA
     Route: 031
  20. TYLENOL [Concomitant]
     Indication: SINUS HEADACHE
  21. SYNTHROID [Concomitant]
     Indication: HYPOTHYROIDISM
     Dosage: 0.75 MG
     Route: 048
     Dates: start: 19770101
  22. PROTONIX [Concomitant]
     Indication: ABDOMINAL DISCOMFORT
     Route: 048
     Dates: start: 20110101

REACTIONS (10)
  - EAR INFECTION [None]
  - BACK PAIN [None]
  - SINUSITIS [None]
  - PRURITUS GENERALISED [None]
  - MIDDLE EAR EFFUSION [None]
  - CYSTITIS [None]
  - DYSPNOEA [None]
  - CONTUSION [None]
  - ARTHRALGIA [None]
  - OEDEMA PERIPHERAL [None]
